FAERS Safety Report 8088385-9 (Version None)
Quarter: 2012Q1

REPORT INFORMATION
  Report Type: 
  Country: None (occurrence: None)
  Receive Date: 20120128
  Receipt Date: 20110531
  Transmission Date: 20120608
  Serious: No
  Sender: FDA-Public Use
  Company Number: US-ABBOTT-11P-163-0729539-00

PATIENT
  Age: 65 Year
  Sex: Female

DRUGS (2)
  1. HUMIRA [Suspect]
     Indication: RHEUMATOID ARTHRITIS
     Dates: start: 20110201
  2. UNKNOWN MEDICATION [Suspect]
     Indication: PAIN
     Dates: start: 20110521

REACTIONS (10)
  - HERPES ZOSTER [None]
  - EYE SWELLING [None]
  - BACK PAIN [None]
  - PAIN IN EXTREMITY [None]
  - DRUG INEFFECTIVE [None]
  - ARTHRALGIA [None]
  - VOMITING [None]
  - CORNEAL DISORDER [None]
  - NAUSEA [None]
  - PAIN [None]
